FAERS Safety Report 13532207 (Version 2)
Quarter: 2017Q2

REPORT INFORMATION
  Report Type: Spontaneous
  Country: US (occurrence: US)
  Receive Date: 20170510
  Receipt Date: 20170602
  Transmission Date: 20170830
  Serious: Yes (Other)
  Sender: FDA-Public Use
  Company Number: US-009507513-1705USA000860

PATIENT
  Age: 22 Year
  Sex: Female
  Weight: 71.66 kg

DRUGS (1)
  1. NUVARING [Suspect]
     Active Substance: ETHINYL ESTRADIOL\ETONOGESTREL
     Indication: CONTRACEPTION
     Dosage: UNK, STRENGTH: 0.015/0.12 (UNITS NOT PROVIDED)
     Route: 067

REACTIONS (1)
  - Chlamydial infection [Recovered/Resolved]

NARRATIVE: CASE EVENT DATE: 20161201
